FAERS Safety Report 6062848-X (Version None)
Quarter: 2009Q1

REPORT INFORMATION
  Report Type: 
  Country: None (occurrence: None)
  Receive Date: 20090202
  Receipt Date: 20090202
  Transmission Date: 20090719
  Serious: Yes (Other)
  Sender: FDA-Public Use
  Company Number: None

PATIENT
  Age: 41 Year
  Sex: Female
  Weight: 61.2356 kg

DRUGS (1)
  1. NIASPAN [Suspect]
     Indication: BLOOD CHOLESTEROL INCREASED
     Dosage: 500 MG 1 TABLET AT NIGHT
     Dates: start: 20080201, end: 20080831

REACTIONS (4)
  - BLISTER [None]
  - FLUSHING [None]
  - PHOTOSENSITIVITY REACTION [None]
  - SUNBURN [None]
